FAERS Safety Report 15995048 (Version 3)
Quarter: 2020Q1

REPORT INFORMATION
  Report Type: Spontaneous
  Country: JP (occurrence: JP)
  Receive Date: 20190222
  Receipt Date: 20200214
  Transmission Date: 20200409
  Serious: Yes (Death, Life-Threatening)
  Sender: FDA-Public Use
  Company Number: JP-ACTELION-A-CH2019-186583

PATIENT
  Age: 27 Year
  Sex: Female
  Weight: 60.8 kg

DRUGS (41)
  1. DAIKENCHUTO [Concomitant]
     Active Substance: HERBALS
     Dosage: 7.5 G, QD
     Dates: end: 20190207
  2. EPOPROSTENOL. [Concomitant]
     Active Substance: EPOPROSTENOL
     Indication: PULMONARY ARTERIAL HYPERTENSION
     Dosage: UNK
     Dates: end: 20190129
  3. ROCURONIUM BROMIDE. [Concomitant]
     Active Substance: ROCURONIUM BROMIDE
     Indication: SEDATION
     Dosage: UNK
     Dates: end: 20190208
  4. BIOFERMIN R [Concomitant]
     Active Substance: DIETARY SUPPLEMENT\PROBIOTICS
     Dosage: 3 G, QD
     Dates: end: 20190126
  5. HYALEIN [Concomitant]
     Active Substance: HYALURONATE SODIUM
  6. FENTANYL. [Concomitant]
     Active Substance: FENTANYL
     Indication: SEDATION
     Dosage: 0.3 MG, QD
     Dates: end: 20190207
  7. BISOLVON [Concomitant]
     Active Substance: BROMHEXINE HYDROCHLORIDE
     Indication: PNEUMOTHORAX
     Dosage: 8 MG, QD
     Dates: end: 20190208
  8. MEROPENEM. [Concomitant]
     Active Substance: MEROPENEM
     Indication: DEVICE RELATED INFECTION
     Dosage: UNK
     Dates: start: 20190127, end: 20190129
  9. SAMTIREL [Concomitant]
     Active Substance: ATOVAQUONE
     Indication: ATELECTASIS
     Dosage: 1500 MG, QD
     Dates: end: 20190208
  10. SAMSCA [Concomitant]
     Active Substance: TOLVAPTAN
     Indication: CARDIAC FAILURE
     Dosage: 7.5 MG, QD
     Dates: start: 20190205, end: 20190208
  11. PRODIF [Concomitant]
     Active Substance: FOSFLUCONAZOLE
     Indication: DEVICE RELATED INFECTION
     Dosage: 400 MG, QD
     Dates: end: 20190208
  12. CEFTAZIDIME. [Concomitant]
     Active Substance: CEFTAZIDIME
     Indication: DEVICE RELATED INFECTION
     Dosage: UNK
     Dates: start: 20190130, end: 20190208
  13. HUMULIN R [Concomitant]
     Active Substance: INSULIN HUMAN
     Indication: DIABETES MELLITUS MANAGEMENT
     Dosage: UNK
     Dates: end: 20190207
  14. SPIRONOLACTONE. [Concomitant]
     Active Substance: SPIRONOLACTONE
     Indication: CARDIAC FAILURE
     Dosage: 25 MG, QD
     Dates: end: 20190208
  15. URSODEOXYCHOLIC ACID [Concomitant]
     Active Substance: URSODIOL
     Indication: HYPERBILIRUBINAEMIA
     Dosage: 300 MG, QD
     Dates: start: 20190204, end: 20190207
  16. ORTEXER [Concomitant]
     Dosage: UNK
     Dates: start: 20190204
  17. PREDONINE [Concomitant]
     Active Substance: PREDNISOLONE
     Indication: ANTINUCLEAR ANTIBODY POSITIVE
     Dosage: UNK
     Dates: end: 20190208
  18. REVATIO [Concomitant]
     Active Substance: SILDENAFIL CITRATE
     Indication: PULMONARY ARTERIAL HYPERTENSION
     Dosage: 60 MG, QD
     Dates: end: 20190208
  19. NORADRENALINE [Concomitant]
     Active Substance: NOREPINEPHRINE
     Indication: PULMONARY ARTERIAL HYPERTENSION
     Dosage: UNK
     Dates: start: 20190127, end: 20190208
  20. LASIX [Concomitant]
     Active Substance: FUROSEMIDE
     Indication: CARDIAC FAILURE
     Dosage: UNK
     Dates: end: 20190207
  21. DENOSINE [Concomitant]
     Indication: DEVICE RELATED INFECTION
     Dosage: 500 MG, QD
     Dates: start: 20190204, end: 20190207
  22. UPTRAVI [Suspect]
     Active Substance: SELEXIPAG
     Dosage: 0.8 MG, BID
     Route: 048
     Dates: start: 20190131, end: 20190201
  23. FLAGYL [Concomitant]
     Active Substance: METRONIDAZOLE\METRONIDAZOLE HYDROCHLORIDE
     Indication: DEVICE RELATED INFECTION
     Dosage: 1000 MG, QD
     Dates: end: 20190208
  24. MIYA-BM [Concomitant]
     Active Substance: CLOSTRIDIUM BUTYRICUM SPORES STRAIN M-55
     Dosage: 6 DF, QD
     Dates: start: 20190126, end: 20190207
  25. VANCOMYCIN [Concomitant]
     Active Substance: VANCOMYCIN
     Indication: DEVICE RELATED INFECTION
     Dosage: UNK
     Dates: end: 20190206
  26. UPTRAVI [Suspect]
     Active Substance: SELEXIPAG
     Dosage: 1.6 MG, BID
     Route: 048
     Dates: start: 20190202, end: 20190207
  27. OPSUMIT [Concomitant]
     Active Substance: MACITENTAN
     Dosage: 10 MG, QD
  28. LANSOPRAZOLE. [Concomitant]
     Active Substance: LANSOPRAZOLE
     Dosage: 15 MG, QD
     Dates: end: 20190208
  29. POTASSIUM CHLORIDE. [Concomitant]
     Active Substance: POTASSIUM CHLORIDE
     Indication: HYPOKALAEMIA
     Dosage: UNK
     Dates: end: 20190129
  30. PITRESSIN [Concomitant]
     Active Substance: VASOPRESSIN
     Indication: PULMONARY ALVEOLAR HAEMORRHAGE
     Dosage: UNK
     Dates: end: 20190208
  31. TRANEXAMIC ACID. [Concomitant]
     Active Substance: TRANEXAMIC ACID
     Indication: PULMONARY ALVEOLAR HAEMORRHAGE
     Dosage: 1000 MG, QD
     Dates: end: 20190202
  32. ELASPOL [Concomitant]
     Active Substance: SIVELESTAT SODIUM
     Indication: ATELECTASIS
     Dosage: UNK
     Dates: start: 20190130, end: 20190203
  33. UPTRAVI [Suspect]
     Active Substance: SELEXIPAG
     Indication: PULMONARY ARTERIAL HYPERTENSION
     Dosage: 0.4 MG, BID
     Route: 048
     Dates: start: 20190125, end: 20190130
  34. ADCIRCA [Concomitant]
     Active Substance: TADALAFIL
     Dosage: 40 MG, QD
  35. BISONO [Concomitant]
     Active Substance: BISOPROLOL
     Indication: HEART RATE DECREASED
     Dosage: 8 MG, QD
     Dates: start: 20190201, end: 20190208
  36. MIDAZOLAM HYDROCHLORIDE. [Concomitant]
     Active Substance: MIDAZOLAM HYDROCHLORIDE
     Indication: SEDATION
     Dosage: UNK
     Dates: end: 20190206
  37. CHICHINA [Concomitant]
     Indication: PULMONARY ALVEOLAR HAEMORRHAGE
     Dosage: 100 MG, QD
     Dates: end: 20190202
  38. ERYTHROCIN LACTOBIONATE [Concomitant]
     Active Substance: ERYTHROMYCIN LACTOBIONATE
     Dosage: UNK
     Dates: start: 20190207, end: 20190208
  39. VENOGLOBULIN IH [Concomitant]
     Active Substance: HUMAN IMMUNOGLOBULIN G
     Indication: PULMONARY ALVEOLAR HAEMORRHAGE
     Dosage: 5 G, QD
     Dates: start: 20190128, end: 20190204
  40. ONOACT [Concomitant]
     Active Substance: LANDIOLOL HYDROCHLORIDE
     Indication: HEART RATE DECREASED
     Dosage: UNK
     Dates: start: 20190130, end: 20190208
  41. PROPOFOL. [Concomitant]
     Active Substance: PROPOFOL
     Indication: SEDATION
     Dosage: UNK
     Dates: start: 20190205, end: 20190208

REACTIONS (4)
  - Condition aggravated [Fatal]
  - Pulmonary arterial hypertension [Fatal]
  - Hypoxic-ischaemic encephalopathy [Not Recovered/Not Resolved]
  - Gastrointestinal haemorrhage [Not Recovered/Not Resolved]

NARRATIVE: CASE EVENT DATE: 20190127
